FAERS Safety Report 25222211 (Version 1)
Quarter: 2025Q2

REPORT INFORMATION
  Report Type: Spontaneous
  Country: FR (occurrence: FR)
  Receive Date: 20250421
  Receipt Date: 20250421
  Transmission Date: 20250716
  Serious: Yes (Other)
  Sender: SAMSUNG BIOEPIS
  Company Number: FR-SAMSUNG BIOEPIS-SB-2025-13674

PATIENT
  Sex: Male

DRUGS (1)
  1. ADALIMUMAB [Suspect]
     Active Substance: ADALIMUMAB
     Indication: Osteomyelitis
     Dosage: 80 MG ON WEEK 1, THEN 40 MG EVERY 2 WEEKS;
     Route: 058

REACTIONS (4)
  - Pancreatitis acute [Unknown]
  - Cholelithiasis [Unknown]
  - Off label use [Unknown]
  - Drug effective for unapproved indication [Unknown]
